FAERS Safety Report 15708148 (Version 2)
Quarter: 2019Q4

REPORT INFORMATION
  Report Type: Report from Study
  Country: US (occurrence: US)
  Receive Date: 20181211
  Receipt Date: 20191011
  Transmission Date: 20200122
  Serious: Yes (Other)
  Sender: FDA-Public Use
  Company Number: US-ROCHE-2224848

PATIENT
  Age: 52 Year
  Sex: Female
  Weight: 60.9 kg

DRUGS (3)
  1. TAXOL [Suspect]
     Active Substance: PACLITAXEL
     Indication: TRIPLE NEGATIVE BREAST CANCER
     Dosage: DATE OF DOSE ADMINISTRATION PRIOR TO ADVERSE EVENT WAS 01/JUN/2018,?DATE OF DOSE ADMINISTRATION PRIO
     Route: 042
     Dates: start: 20180601
  2. ATEZOLIZUMAB. [Suspect]
     Active Substance: ATEZOLIZUMAB
     Indication: TRIPLE NEGATIVE BREAST CANCER
     Dosage: DATE OF DOSE ADMINISTRATION PRIOR TO ADVERSE EVENT WAS 01/JUN/2018,?DATE OF DOSE ADMINISTRATION PRIO
     Route: 041
     Dates: start: 20180601
  3. CARBOPLATIN. [Suspect]
     Active Substance: CARBOPLATIN
     Indication: TRIPLE NEGATIVE BREAST CANCER
     Dosage: DATE OF DOSE ADMINISTRATION PRIOR TO ADVERSE EVENT WAS 01/JUN/2018,?DATE OF DOSE ADMINISTRATION PRIO
     Route: 042
     Dates: start: 20180601

REACTIONS (1)
  - Neutrophil count decreased [Unknown]
